FAERS Safety Report 8896204 (Version 2)
Quarter: 2013Q1

REPORT INFORMATION
  Report Type: Spontaneous
  Country: US (occurrence: US)
  Receive Date: 20121108
  Receipt Date: 20130304
  Transmission Date: 20140127
  Serious: Yes (Other)
  Sender: FDA-Public Use
  Company Number: PHEH2012US021940

PATIENT
  Age: 63 Year
  Sex: Female
  Weight: 52.15 kg

DRUGS (10)
  1. GILENYA [Suspect]
     Dosage: 0.5 MG, QD
     Route: 048
  2. AMPYRA [Concomitant]
     Dosage: 10 MG, UNK
  3. CLONAZEPAM [Concomitant]
     Dosage: 1 MG, UNK
  4. PROZAC [Concomitant]
     Dosage: 40 MG, UNK
  5. BACLOFEN [Concomitant]
     Dosage: 20 MG, UNK
  6. TYLENOL [Concomitant]
     Dosage: 325 MG, UNK
  7. MOTRIN [Concomitant]
  8. VITAMIN D [Concomitant]
     Dosage: 1000 IU, UNK
  9. VENTOLIN HFA [Concomitant]
  10. ADVAIR DISKUS [Concomitant]
     Dosage: 250/50

REACTIONS (10)
  - Vascular occlusion [Unknown]
  - Scotoma [Unknown]
  - Vision blurred [Unknown]
  - Visual field defect [Unknown]
  - Multiple sclerosis relapse [Unknown]
  - Central nervous system lesion [Unknown]
  - Balance disorder [Unknown]
  - Motor dysfunction [Unknown]
  - Vertigo [Unknown]
  - Fatigue [Unknown]
